FAERS Safety Report 21363559 (Version 1)
Quarter: 2022Q3

REPORT INFORMATION
  Report Type: Other
  Country: CO (occurrence: None)
  Receive Date: 20220922
  Receipt Date: 20220922
  Transmission Date: 20221027
  Serious: Yes (Hospitalization, Other)
  Sender: FDA-Public Use
  Company Number: CO-ROCHE-3180766

PATIENT

DRUGS (3)
  1. ENTRECTINIB [Suspect]
     Active Substance: ENTRECTINIB
     Indication: Lung adenocarcinoma stage IV
     Dosage: DOSE AND FREQUENCY WERE NOT REPORTED.
     Route: 065
     Dates: start: 20210327, end: 20220625
  2. ENTRECTINIB [Suspect]
     Active Substance: ENTRECTINIB
     Dosage: DOSE AND FREQUENCY WERE NOT REPORTED.
     Route: 065
     Dates: start: 20220714
  3. ROSUVASTATIN [Concomitant]
     Active Substance: ROSUVASTATIN
     Dates: end: 20220801

REACTIONS (12)
  - Blood creatine phosphokinase increased [Not Recovered/Not Resolved]
  - Myopathy [Unknown]
  - Aspartate aminotransferase increased [Unknown]
  - Alanine aminotransferase increased [Unknown]
  - Blood creatine phosphokinase MB increased [Unknown]
  - Renal impairment [Not Recovered/Not Resolved]
  - Dry mouth [Not Recovered/Not Resolved]
  - Dysgeusia [Not Recovered/Not Resolved]
  - Asthenia [Not Recovered/Not Resolved]
  - Abdominal pain upper [Not Recovered/Not Resolved]
  - Weight increased [Not Recovered/Not Resolved]
  - Vertigo [Not Recovered/Not Resolved]

NARRATIVE: CASE EVENT DATE: 20210405
